FAERS Safety Report 7718778-8 (Version None)
Quarter: 2011Q3

REPORT INFORMATION
  Report Type: 
  Country: None (occurrence: None)
  Receive Date: 20110830
  Receipt Date: 20110825
  Transmission Date: 20111222
  Serious: Yes (Death, Hospitalization, Other)
  Sender: FDA-Public Use
  Company Number: JP-PFIZER INC-2011188584

PATIENT
  Age: 63 Year
  Sex: Male
  Weight: 66 kg

DRUGS (2)
  1. SUTENT [Suspect]
     Indication: RENAL CELL CARCINOMA
     Dosage: 50 MG, 1X/DAY
     Route: 048
     Dates: start: 20110309, end: 20110628
  2. PROMACTA [Suspect]
     Indication: DYSGEUSIA
     Dosage: 75 MG, 2X/DAY
     Dates: start: 20110628, end: 20110722

REACTIONS (6)
  - RECTAL HAEMORRHAGE [None]
  - RENAL CELL CARCINOMA [None]
  - DEPRESSED LEVEL OF CONSCIOUSNESS [None]
  - HYPERTENSION [None]
  - DISEASE PROGRESSION [None]
  - RENAL FAILURE ACUTE [None]
